FAERS Safety Report 23608356 (Version 3)
Quarter: 2025Q4

REPORT INFORMATION
  Report Type: Spontaneous
  Country: JP (occurrence: JP)
  Receive Date: 20240307
  Receipt Date: 20251203
  Transmission Date: 20260118
  Serious: Yes (Other)
  Sender: CSL BEHRING
  Company Number: JP-BEH-2024169261

PATIENT
  Age: 36 Year
  Sex: Female

DRUGS (8)
  1. BERINERT [Suspect]
     Active Substance: HUMAN C1-ESTERASE INHIBITOR
     Indication: Hereditary angioedema
     Dosage: UNK
     Route: 042
  2. BERINERT [Suspect]
     Active Substance: HUMAN C1-ESTERASE INHIBITOR
     Indication: Hereditary angioedema
     Dosage: UNK
     Route: 042
  3. BERINERT [Suspect]
     Active Substance: HUMAN C1-ESTERASE INHIBITOR
     Indication: Prophylaxis
  4. BERINERT [Suspect]
     Active Substance: HUMAN C1-ESTERASE INHIBITOR
     Indication: Prophylaxis
  5. BERINERT [Suspect]
     Active Substance: HUMAN C1-ESTERASE INHIBITOR
     Indication: Delivery
  6. BERINERT [Suspect]
     Active Substance: HUMAN C1-ESTERASE INHIBITOR
     Indication: Delivery
  7. BERINERT [Suspect]
     Active Substance: HUMAN C1-ESTERASE INHIBITOR
     Indication: Hereditary angioedema with C1 esterase inhibitor deficiency
  8. BERINERT [Suspect]
     Active Substance: HUMAN C1-ESTERASE INHIBITOR
     Indication: Hereditary angioedema with C1 esterase inhibitor deficiency

REACTIONS (2)
  - Vulvovaginal injury [Recovered/Resolved]
  - Maternal exposure during pregnancy [Unknown]
